FAERS Safety Report 4471049-8 (Version None)
Quarter: 2004Q4

REPORT INFORMATION
  Report Type: 
  Country: None (occurrence: None)
  Receive Date: 20041011
  Receipt Date: 20041005
  Transmission Date: 20050328
  Serious: Yes (Hospitalization)
  Sender: FDA-Public Use
  Company Number: FR-GLAXOSMITHKLINE-B0347118A

PATIENT
  Age: 37 Year
  Sex: Female
  Weight: 69 kg

DRUGS (1)
  1. CEFUROXIME AXETIL [Suspect]
     Indication: ILL-DEFINED DISORDER
     Dosage: 500MG PER DAY
     Route: 048
     Dates: start: 20040712, end: 20040712

REACTIONS (3)
  - ANGIONEUROTIC OEDEMA [None]
  - FACE OEDEMA [None]
  - OEDEMA PERIPHERAL [None]
